FAERS Safety Report 25226523 (Version 2)
Quarter: 2025Q2

REPORT INFORMATION
  Report Type: Spontaneous
  Country: CN (occurrence: CN)
  Receive Date: 20250422
  Receipt Date: 20250428
  Transmission Date: 20250717
  Serious: Yes (Hospitalization, Other)
  Sender: Kenvue
  Company Number: CN-KENVUE-20250406276

PATIENT

DRUGS (1)
  1. ACETAMINOPHEN [Suspect]
     Active Substance: ACETAMINOPHEN
     Indication: Migraine
     Route: 065

REACTIONS (4)
  - Cytotoxic lesions of corpus callosum [Recovered/Resolved]
  - Blood creatine phosphokinase increased [Recovered/Resolved]
  - Incorrect dose administered [Unknown]
  - Alanine aminotransferase increased [Recovered/Resolved]
